FAERS Safety Report 21387378 (Version 1)
Quarter: 2022Q3

REPORT INFORMATION
  Report Type: Spontaneous
  Country: GB (occurrence: GB)
  Receive Date: 20220928
  Receipt Date: 20220928
  Transmission Date: 20221026
  Serious: Yes (Other)
  Sender: FDA-Public Use
  Company Number: GB-MYLANLABS-2022M1096991

PATIENT
  Age: 20 Year
  Sex: Male

DRUGS (7)
  1. MYCOPHENOLATE MOFETIL [Suspect]
     Active Substance: MYCOPHENOLATE MOFETIL
     Indication: Hepatitis
     Dosage: 500 MILLIGRAM, BID
     Route: 065
  2. METHYLPREDNISOLONE [Suspect]
     Active Substance: METHYLPREDNISOLONE
     Indication: Hepatitis
     Dosage: 2 MILLIGRAM/KILOGRAM
     Route: 065
  3. METHYLPREDNISOLONE [Suspect]
     Active Substance: METHYLPREDNISOLONE
     Dosage: 1 GRAM, QD
     Route: 065
  4. NIVOLUMAB [Concomitant]
     Active Substance: NIVOLUMAB
     Indication: Metastatic malignant melanoma
     Dosage: UNK, CYCLE
     Route: 065
     Dates: start: 201909
  5. IPILIMUMAB [Concomitant]
     Active Substance: IPILIMUMAB
     Indication: Metastatic malignant melanoma
     Dosage: UNK, CYCLE
     Route: 065
     Dates: start: 201909
  6. COTRIMOXAZOLE [Concomitant]
     Active Substance: SULFAMETHOXAZOLE\TRIMETHOPRIM
     Indication: Antibiotic prophylaxis
     Dosage: UNK
     Route: 065
  7. FLUCONAZOLE [Concomitant]
     Active Substance: FLUCONAZOLE
     Indication: Antifungal prophylaxis
     Dosage: UNK
     Route: 065

REACTIONS (2)
  - Drug ineffective for unapproved indication [Unknown]
  - Off label use [Unknown]
